FAERS Safety Report 19430182 (Version 1)
Quarter: 2021Q2

REPORT INFORMATION
  Report Type: Spontaneous
  Country: DE (occurrence: DE)
  Receive Date: 20210618
  Receipt Date: 20210618
  Transmission Date: 20210717
  Serious: Yes (Other)
  Sender: FDA-Public Use
  Company Number: DE-ROCHE-2850809

PATIENT
  Sex: Female

DRUGS (2)
  1. OMALIZUMAB. [Suspect]
     Active Substance: OMALIZUMAB
     Indication: ASTHMA
  2. OMALIZUMAB. [Suspect]
     Active Substance: OMALIZUMAB
     Indication: BLOOD IMMUNOGLOBULIN E INCREASED
     Dosage: UNK
     Route: 065

REACTIONS (1)
  - Glomerular filtration rate decreased [Unknown]
